FAERS Safety Report 10676767 (Version 2)
Quarter: 2014Q4

REPORT INFORMATION
  Report Type: Report from Study
  Country: BR (occurrence: BR)
  Receive Date: 20141226
  Receipt Date: 20141226
  Transmission Date: 20150529
  Serious: Yes (Death, Hospitalization, Other)
  Sender: FDA-Public Use
  Company Number: BR-BAYER-2014-176551

PATIENT
  Age: 75 Year
  Sex: Male

DRUGS (13)
  1. NEXAVAR [Suspect]
     Active Substance: SORAFENIB
     Dosage: 400 MG, BID
     Route: 048
  2. FERROUS SULFATE [Concomitant]
     Active Substance: FERROUS SULFATE\FERROUS SULFATE, DRIED
     Indication: PRODUCT USED FOR UNKNOWN INDICATION
     Route: 048
  3. THIAMINE [Concomitant]
     Active Substance: THIAMINE
     Indication: PRODUCT USED FOR UNKNOWN INDICATION
     Route: 048
  4. SIMVASTATIN. [Concomitant]
     Active Substance: SIMVASTATIN
     Indication: PRODUCT USED FOR UNKNOWN INDICATION
     Route: 048
  5. APRESOLINE HYDROCHLORIDE [Concomitant]
     Active Substance: HYDRALAZINE HYDROCHLORIDE
     Indication: DYSURIA
     Route: 048
  6. FOLIC ACID. [Concomitant]
     Active Substance: FOLIC ACID
     Indication: PRODUCT USED FOR UNKNOWN INDICATION
     Route: 048
  7. NPH INSULIN [Concomitant]
     Active Substance: INSULIN BEEF
     Indication: DIABETES MELLITUS
     Route: 058
  8. PROPRANOLOL [Concomitant]
     Active Substance: PROPRANOLOL\PROPRANOLOL HYDROCHLORIDE
     Indication: TACHYCARDIA
     Route: 048
  9. NEXAVAR [Suspect]
     Active Substance: SORAFENIB
     Dosage: 200 MG, BID
  10. NORFLOXACIN [Concomitant]
     Active Substance: NORFLOXACIN
     Indication: INFECTION
     Route: 048
  11. INSULIN REGULAR [Concomitant]
     Active Substance: INSULIN NOS
     Indication: DIABETES MELLITUS
     Route: 058
  12. PURAN [Concomitant]
     Active Substance: LEVOTHYROXINE SODIUM
     Indication: PRODUCT USED FOR UNKNOWN INDICATION
     Route: 048
  13. LOSARTAN [Concomitant]
     Active Substance: LOSARTAN
     Indication: BLOOD PRESSURE
     Route: 048

REACTIONS (9)
  - Hepatic cancer [Fatal]
  - Abdominal pain [Not Recovered/Not Resolved]
  - Internal haemorrhage [Not Recovered/Not Resolved]
  - Anaemia [Not Recovered/Not Resolved]
  - Ascites [Not Recovered/Not Resolved]
  - Skin discolouration [Not Recovered/Not Resolved]
  - Pyrexia [Not Recovered/Not Resolved]
  - Renal failure [Not Recovered/Not Resolved]
  - Dyspnoea [Not Recovered/Not Resolved]

NARRATIVE: CASE EVENT DATE: 201411
